FAERS Safety Report 5477619-2 (Version None)
Quarter: 2007Q4

REPORT INFORMATION
  Report Type: 
  Country: None (occurrence: None)
  Receive Date: 20071002
  Receipt Date: 20070917
  Transmission Date: 20080405
  Serious: Yes (Hospitalization)
  Sender: FDA-Public Use
  Company Number: 230201K07BRA

PATIENT
  Age: 37 Year
  Sex: Female

DRUGS (1)
  1. REBIF [Suspect]
     Dosage: 22 MCG, 3 IN 1 WEEKS

REACTIONS (11)
  - ABDOMINAL PAIN [None]
  - CONSTIPATION [None]
  - DYSURIA [None]
  - FATIGUE [None]
  - HAEMATURIA [None]
  - MUSCULAR WEAKNESS [None]
  - OLIGURIA [None]
  - PARAESTHESIA [None]
  - PYELONEPHRITIS [None]
  - URINARY TRACT INFECTION [None]
  - WEIGHT INCREASED [None]
